FAERS Safety Report 8220889-8 (Version None)
Quarter: 2012Q1

REPORT INFORMATION
  Report Type: 
  Country: None (occurrence: None)
  Receive Date: 20120314
  Receipt Date: 20120302
  Transmission Date: 20120608
  Serious: Yes (Hospitalization)
  Sender: FDA-Public Use
  Company Number: US-ELI_LILLY_AND_COMPANY-US201008007671

PATIENT
  Sex: Male

DRUGS (11)
  1. FORTEO [Suspect]
     Indication: OSTEOPOROSIS
     Dosage: 20 UG, DAILY (1/D)
     Route: 065
     Dates: start: 20100806
  2. FORTEO [Suspect]
     Dosage: 20 UG, DAILY (1/D)
  3. CALCIUM CARBONATE [Concomitant]
  4. VITAMIN D [Concomitant]
  5. VITAMIN TAB [Concomitant]
  6. LOVAZA [Concomitant]
  7. KONSYL [Concomitant]
  8. FORTEO [Suspect]
     Dosage: 20 UG, DAILY (1/D)
  9. MERCAPTOPURINE [Concomitant]
     Indication: CROHN'S DISEASE
  10. FLORASTOR [Concomitant]
     Dosage: UNK, BID
  11. LIDODERM [Concomitant]

REACTIONS (10)
  - LARGE INTESTINE PERFORATION [None]
  - SINUS DISORDER [None]
  - FATIGUE [None]
  - HYPERHIDROSIS [None]
  - DIZZINESS [None]
  - INJECTION SITE PAIN [None]
  - NAUSEA [None]
  - MALAISE [None]
  - ANORECTAL DISCOMFORT [None]
  - PAIN [None]
